FAERS Safety Report 4907494-3 (Version None)
Quarter: 2006Q1

REPORT INFORMATION
  Report Type: 
  Country: None (occurrence: None)
  Receive Date: 20060210
  Receipt Date: 20060106
  Transmission Date: 20060701
  Serious: Yes (Other)
  Sender: FDA-Public Use
  Company Number: US-MERCK-0601USA00792

PATIENT
  Age: 52 Year
  Sex: Male
  Weight: 80 kg

DRUGS (5)
  1. VIOXX [Suspect]
     Indication: ACCIDENT AT WORK
     Route: 048
     Dates: start: 20000101, end: 20041001
  2. PREDNISONE [Concomitant]
     Route: 065
  3. NEXIUM [Concomitant]
     Route: 065
  4. ASPIRIN [Concomitant]
     Route: 065
  5. COD LIVER OIL [Concomitant]
     Route: 065

REACTIONS (3)
  - CARDIAC DISORDER [None]
  - MYOCARDIAL INFARCTION [None]
  - NECK INJURY [None]
